FAERS Safety Report 24803483 (Version 3)
Quarter: 2025Q1

REPORT INFORMATION
  Report Type: Report from Study
  Country: US (occurrence: US)
  Receive Date: 20250103
  Receipt Date: 20250206
  Transmission Date: 20250409
  Serious: Yes (Hospitalization, Other)
  Sender: BOEHRINGER INGELHEIM
  Company Number: US-BoehringerIngelheim-2023-BI-263498

PATIENT
  Age: 83 Year
  Sex: Male

DRUGS (3)
  1. OFEV [Suspect]
     Active Substance: NINTEDANIB
     Indication: Idiopathic pulmonary fibrosis
     Dates: start: 20230901
  2. OFEV [Suspect]
     Active Substance: NINTEDANIB
     Dates: start: 20240711, end: 202407
  3. OFEV [Suspect]
     Active Substance: NINTEDANIB
     Dates: start: 2024

REACTIONS (25)
  - Diarrhoea [Recovered/Resolved]
  - Haematochezia [Not Recovered/Not Resolved]
  - Coronary arterial stent insertion [Not Recovered/Not Resolved]
  - Skin cancer [Not Recovered/Not Resolved]
  - Idiopathic pulmonary fibrosis [Not Recovered/Not Resolved]
  - Asthenia [Not Recovered/Not Resolved]
  - Weight decreased [Not Recovered/Not Resolved]
  - Decreased appetite [Not Recovered/Not Resolved]
  - Dizziness postural [Not Recovered/Not Resolved]
  - Abdominal pain upper [Not Recovered/Not Resolved]
  - Food intolerance [Not Recovered/Not Resolved]
  - Diarrhoea [Not Recovered/Not Resolved]
  - Abdominal pain upper [Not Recovered/Not Resolved]
  - Abdominal discomfort [Not Recovered/Not Resolved]
  - Abdominal pain upper [Not Recovered/Not Resolved]
  - Flatulence [Not Recovered/Not Resolved]
  - Nausea [Not Recovered/Not Resolved]
  - Fatigue [Not Recovered/Not Resolved]
  - Ageusia [Recovering/Resolving]
  - Constipation [Not Recovered/Not Resolved]
  - Dyspnoea exertional [Not Recovered/Not Resolved]
  - Dairy intolerance [Unknown]
  - Productive cough [Not Recovered/Not Resolved]
  - Post procedural complication [Unknown]
  - Nasal dryness [Unknown]

NARRATIVE: CASE EVENT DATE: 20230901
